FAERS Safety Report 5848559-1 (Version None)
Quarter: 2008Q3

REPORT INFORMATION
  Report Type: 
  Country: None (occurrence: None)
  Receive Date: 20080814
  Receipt Date: 20080804
  Transmission Date: 20090109
  Serious: Yes (Death, Life-Threatening, Hospitalization, Other)
  Sender: FDA-Public Use
  Company Number: 20085463

PATIENT
  Age: 62 Year
  Sex: Female

DRUGS (4)
  1. LIORESAL [Suspect]
     Indication: MUSCLE SPASTICITY
     Dosage: 132 MCG, DAILY, INTRATHECAL
     Route: 037
  2. TIZANIDINE HCL [Concomitant]
  3. DANTROLENE SODIUM [Concomitant]
  4. BACLOFEN [Concomitant]

REACTIONS (5)
  - ABDOMINAL DISTENSION [None]
  - ABDOMINAL PAIN UPPER [None]
  - ILEUS PARALYTIC [None]
  - POST PROCEDURAL COMPLICATION [None]
  - VOMITING [None]
